FAERS Safety Report 13158866 (Version 1)
Quarter: 2017Q1

REPORT INFORMATION
  Report Type: Spontaneous
  Country: US (occurrence: US)
  Receive Date: 20170127
  Receipt Date: 20170127
  Transmission Date: 20170428
  Serious: No
  Sender: FDA-Public Use
  Company Number: US-AKRIMAX-TIR-2016-1252

PATIENT
  Age: 26 Year
  Sex: Female
  Weight: 61.29 kg

DRUGS (2)
  1. TIROSINT [Suspect]
     Active Substance: LEVOTHYROXINE SODIUM
     Dosage: ONE 25MCG CAPSULE DAILY FOUR DAYS A WEEK AND TWO 25MCG CAPSULES DAILY THREE DAYS A WEEK
     Route: 048
     Dates: start: 20161113
  2. TIROSINT [Suspect]
     Active Substance: LEVOTHYROXINE SODIUM
     Indication: AUTOIMMUNE THYROIDITIS
     Dosage: ONE 25MCG CAPSULE DAILY FOUR DAYS A WEEK AND TWO 25MCG CAPSULES DAILY THREE DAYS A WEEK
     Route: 048
     Dates: start: 201610, end: 201611

REACTIONS (2)
  - Back pain [Recovered/Resolved]
  - Insomnia [Recovered/Resolved]

NARRATIVE: CASE EVENT DATE: 201610
